FAERS Safety Report 8381685-4 (Version None)
Quarter: 2012Q2

REPORT INFORMATION
  Report Type: 
  Country: None (occurrence: None)
  Receive Date: 20120524
  Receipt Date: 20120516
  Transmission Date: 20120825
  Serious: Yes (Hospitalization)
  Sender: FDA-Public Use
  Company Number: HK-BRISTOL-MYERS SQUIBB COMPANY-16395204

PATIENT
  Age: 67 Year
  Sex: Male

DRUGS (8)
  1. ASPIRIN [Concomitant]
  2. HUMULIN N [Suspect]
     Indication: TYPE 2 DIABETES MELLITUS
     Dosage: 30IU:UNK-4JAN2012 40IU/U:5JAN12-4FEB2012 36IU/U:5FEB2012-ONG
  3. ACETAMINOPHEN [Concomitant]
     Dates: start: 20120118, end: 20120124
  4. BLINDED: SAXAGLIPTIN [Suspect]
     Indication: TYPE 2 DIABETES MELLITUS
     Dates: start: 20110211, end: 20110228
  5. PLACEBO [Suspect]
     Indication: TYPE 2 DIABETES MELLITUS
     Dates: start: 20110211, end: 20110228
  6. METFORMIN HCL [Suspect]
     Indication: TYPE 2 DIABETES MELLITUS
  7. GLYBURIDE [Suspect]
     Indication: TYPE 2 DIABETES MELLITUS
  8. METOPROLOL TARTRATE [Suspect]

REACTIONS (2)
  - SYNCOPE [None]
  - SICK SINUS SYNDROME [None]
